FAERS Safety Report 23937533 (Version 1)
Quarter: 2024Q2

REPORT INFORMATION
  Report Type: Spontaneous
  Country: US (occurrence: US)
  Receive Date: 20240604
  Receipt Date: 20240604
  Transmission Date: 20240716
  Serious: Yes (Hospitalization)
  Sender: FDA-Public Use
  Company Number: US-GLAXOSMITHKLINE-US2024066304

PATIENT

DRUGS (2)
  1. TRELEGY ELLIPTA [Suspect]
     Active Substance: FLUTICASONE FUROATE\UMECLIDINIUM BROMIDE\VILANTEROL TRIFENATATE
     Indication: Chronic obstructive pulmonary disease
     Dosage: 100 MG, QD
     Dates: start: 202211
  2. PREDNISONE [Concomitant]
     Active Substance: PREDNISONE
     Indication: Cardiac disorder
     Dosage: 50 MG, QD
     Dates: start: 20240528

REACTIONS (1)
  - Cardiac disorder [Unknown]
